FAERS Safety Report 4311308-2 (Version None)
Quarter: 2004Q1

REPORT INFORMATION
  Report Type: 
  Country: None (occurrence: None)
  Receive Date: 20040302
  Receipt Date: 20031028
  Transmission Date: 20041129
  Serious: Yes (Hospitalization)
  Sender: FDA-Public Use
  Company Number: BDI-005563

PATIENT
  Age: 37 Year
  Sex: Male
  Weight: 105 kg

DRUGS (2)
  1. ISOVUE-300 [Suspect]
     Indication: ABDOMINAL PAIN UPPER
     Dosage: 100 ML ONCE IV
     Dates: start: 20031023, end: 20031023
  2. ISOVUE-300 [Suspect]
     Indication: COMPUTERISED TOMOGRAM
     Dosage: 100 ML ONCE IV
     Dates: start: 20031023, end: 20031023

REACTIONS (5)
  - EYE PRURITUS [None]
  - NASAL CONGESTION [None]
  - OROPHARYNGEAL SWELLING [None]
  - SNEEZING [None]
  - THROAT IRRITATION [None]
